FAERS Safety Report 13014298 (Version 1)
Quarter: 2016Q4

REPORT INFORMATION
  Report Type: Spontaneous
  Country: US (occurrence: US)
  Receive Date: 20161209
  Receipt Date: 20161209
  Transmission Date: 20170207
  Serious: No
  Sender: FDA-Public Use
  Company Number: US-INCYTE CORPORATION-2016IN007628

PATIENT
  Sex: Female

DRUGS (1)
  1. JAKAFI [Suspect]
     Active Substance: RUXOLITINIB
     Indication: MYELOFIBROSIS
     Dosage: 15 MG DAILY ON ODD DAYS OF MONTH AND TWO TABLETS ON EVEN DAYS OF MONTH
     Route: 048
     Dates: start: 20160222

REACTIONS (2)
  - Pruritus [Unknown]
  - Inappropriate schedule of drug administration [Unknown]
